FAERS Safety Report 18382866 (Version 1)
Quarter: 2020Q4

REPORT INFORMATION
  Report Type: Spontaneous
  Country: US (occurrence: US)
  Receive Date: 20201014
  Receipt Date: 20201014
  Transmission Date: 20210114
  Serious: Yes (Other)
  Sender: FDA-Public Use
  Company Number: None

PATIENT
  Age: 24 Year
  Sex: Female
  Weight: 60.75 kg

DRUGS (1)
  1. PHENTERMINE 30MG CAPSULE OBLONG YELLOW CAPSULE [Suspect]
     Active Substance: PHENTERMINE
     Indication: WEIGHT DECREASED
     Dosage: ?          QUANTITY:7 CAPSULE(S);?
     Route: 048
     Dates: start: 20200817, end: 20200824

REACTIONS (5)
  - Dizziness [None]
  - Vomiting [None]
  - Nausea [None]
  - Malaise [None]
  - Suspected counterfeit product [None]

NARRATIVE: CASE EVENT DATE: 20200824
